FAERS Safety Report 8248888-0 (Version None)
Quarter: 2012Q2

REPORT INFORMATION
  Report Type: 
  Country: None (occurrence: None)
  Receive Date: 20120401
  Receipt Date: 20120319
  Transmission Date: 20120825
  Serious: Yes (Other)
  Sender: FDA-Public Use
  Company Number: GB-ELI_LILLY_AND_COMPANY-GB201203006116

PATIENT
  Sex: Female

DRUGS (4)
  1. CYMBALTA [Suspect]
     Dosage: UNK, UNKNOWN
     Dates: start: 20110101
  2. CYMBALTA [Suspect]
     Indication: DEPRESSION
     Dosage: UNK, UNKNOWN
     Dates: start: 20070101, end: 20110101
  3. CYMBALTA [Suspect]
     Dosage: UNK
  4. QUETIAPINE [Concomitant]

REACTIONS (3)
  - MOOD SWINGS [None]
  - DRUG WITHDRAWAL SYNDROME [None]
  - SELF-INJURIOUS IDEATION [None]
